FAERS Safety Report 4544821-3 (Version None)
Quarter: 2005Q1

REPORT INFORMATION
  Report Type: 
  Country: None (occurrence: None)
  Receive Date: 20050105
  Receipt Date: 20041025
  Transmission Date: 20050727
  Serious: Yes (Life-Threatening, Hospitalization, Disabling)
  Sender: FDA-Public Use
  Company Number: US-MERCK-0410USA03735

PATIENT
  Age: 79 Year
  Sex: Male

DRUGS (9)
  1. VIOXX [Suspect]
     Indication: ARTHRITIS
     Route: 048
     Dates: start: 20011210
  2. VIOXX [Suspect]
     Route: 048
     Dates: end: 20030802
  3. VIOXX [Suspect]
     Route: 065
  4. LEVOXYL [Concomitant]
     Route: 065
  5. DIOVAN [Concomitant]
     Route: 065
  6. DILTIAZEM CD [Concomitant]
     Route: 065
  7. PROSCAR [Concomitant]
     Route: 048
  8. ANACIN [Concomitant]
     Route: 065
  9. MOTRIN [Concomitant]
     Route: 065

REACTIONS (10)
  - AORTIC VALVE INCOMPETENCE [None]
  - ATRIAL FIBRILLATION [None]
  - CAROTID ARTERY STENOSIS [None]
  - CEREBRAL ARTERY OCCLUSION [None]
  - CEREBRAL ATROPHY [None]
  - ELECTROCARDIOGRAM QT CORRECTED INTERVAL PROLONGED [None]
  - GASTRITIS [None]
  - HEAT EXHAUSTION [None]
  - MITRAL VALVE INCOMPETENCE [None]
  - VENTRICULAR HYPERTROPHY [None]
